FAERS Safety Report 8605252 (Version 45)
Quarter: 2019Q4

REPORT INFORMATION
  Report Type: Report from Study
  Country: CA (occurrence: CA)
  Receive Date: 20120608
  Receipt Date: 20191213
  Transmission Date: 20200122
  Serious: Yes (Other)
  Sender: FDA-Public Use
  Company Number: CA-ROCHE-1075675

PATIENT
  Age: 67 Year
  Sex: Female
  Weight: 87 kg

DRUGS (18)
  1. ACTEMRA [Suspect]
     Active Substance: TOCILIZUMAB
     Route: 042
     Dates: start: 20160222
  2. FOLIC ACID. [Concomitant]
     Active Substance: FOLIC ACID
  3. ACTEMRA [Suspect]
     Active Substance: TOCILIZUMAB
     Route: 042
     Dates: start: 20141204, end: 20160210
  4. PREDNISONE. [Concomitant]
     Active Substance: PREDNISONE
  5. ACTEMRA [Suspect]
     Active Substance: TOCILIZUMAB
     Route: 042
     Dates: start: 20190819
  6. ASPIRIN [ACETYLSALICYLIC ACID] [Concomitant]
     Active Substance: ASPIRIN
  7. ACTEMRA [Suspect]
     Active Substance: TOCILIZUMAB
     Indication: POLYMYALGIA RHEUMATICA
     Route: 042
     Dates: start: 20110922, end: 20120830
  8. ACTEMRA [Suspect]
     Active Substance: TOCILIZUMAB
     Route: 042
     Dates: start: 20150923
  9. ACTONEL [Concomitant]
     Active Substance: RISEDRONATE SODIUM
  10. COUMADIN [Concomitant]
     Active Substance: WARFARIN SODIUM
  11. ACTEMRA [Suspect]
     Active Substance: TOCILIZUMAB
     Route: 042
     Dates: start: 20120927, end: 20140903
  12. ACTEMRA [Suspect]
     Active Substance: TOCILIZUMAB
     Route: 042
     Dates: start: 20160314, end: 20190619
  13. ACTEMRA [Suspect]
     Active Substance: TOCILIZUMAB
     Route: 042
     Dates: start: 20190717, end: 20190717
  14. BISOPROLOL [Concomitant]
     Active Substance: BISOPROLOL
  15. METHOTREXATE. [Concomitant]
     Active Substance: METHOTREXATE
  16. ACTEMRA [Suspect]
     Active Substance: TOCILIZUMAB
     Route: 042
     Dates: start: 20141104, end: 20141104
  17. ACTEMRA [Suspect]
     Active Substance: TOCILIZUMAB
     Dosage: 4 MG/KG
     Route: 042
     Dates: start: 201603
  18. HYDROCHLOROTHIAZIDE. [Concomitant]
     Active Substance: HYDROCHLOROTHIAZIDE

REACTIONS (36)
  - Peripheral swelling [Unknown]
  - Sleep apnoea syndrome [Unknown]
  - Nasopharyngitis [Not Recovered/Not Resolved]
  - Nasopharyngitis [Recovered/Resolved]
  - Diarrhoea [Unknown]
  - Phlebitis [Recovering/Resolving]
  - Blood cholesterol increased [Unknown]
  - Skin discolouration [Not Recovered/Not Resolved]
  - Balance disorder [Unknown]
  - Intentional product use issue [Unknown]
  - Tooth disorder [Unknown]
  - Fatigue [Not Recovered/Not Resolved]
  - Arthritis [Unknown]
  - Nasal discharge discolouration [Unknown]
  - Body temperature decreased [Unknown]
  - Joint stiffness [Unknown]
  - Myalgia [Unknown]
  - Weight decreased [Unknown]
  - Poor venous access [Recovered/Resolved]
  - Weight increased [Recovering/Resolving]
  - Oxygen saturation decreased [Unknown]
  - Musculoskeletal stiffness [Not Recovered/Not Resolved]
  - Pain [Unknown]
  - Body temperature increased [Unknown]
  - Oedema peripheral [Unknown]
  - Paraesthesia [Unknown]
  - Blood pressure systolic abnormal [Unknown]
  - Arthralgia [Unknown]
  - Neoplasm malignant [Unknown]
  - Abdominal pain [Recovered/Resolved]
  - Off label use [Unknown]
  - Blood pressure increased [Not Recovered/Not Resolved]
  - Blood pressure systolic increased [Unknown]
  - Mouth ulceration [Recovering/Resolving]
  - Drug ineffective [Unknown]
  - Arthralgia [Unknown]

NARRATIVE: CASE EVENT DATE: 20120308
